FAERS Safety Report 16813738 (Version 2)
Quarter: 2019Q4

REPORT INFORMATION
  Report Type: Spontaneous
  Country: FR (occurrence: FR)
  Receive Date: 20190917
  Receipt Date: 20191001
  Transmission Date: 20200122
  Serious: Yes (Death)
  Sender: FDA-Public Use
  Company Number: FR-OCTA-ALB01919FR

PATIENT
  Age: 65 Year
  Sex: Male
  Weight: 68 kg

DRUGS (3)
  1. PRIVIGEN [Suspect]
     Active Substance: HUMAN IMMUNOGLOBULIN G
     Indication: LUNG TRANSPLANT REJECTION
     Route: 042
     Dates: start: 20190807, end: 20190810
  2. ALBUNORM 5% [Suspect]
     Active Substance: ALBUMIN HUMAN
     Indication: PLASMAPHERESIS
     Route: 042
     Dates: start: 20190807, end: 20190810
  3. PLASMION [Suspect]
     Active Substance: GELATIN
     Indication: PLASMAPHERESIS
     Route: 042
     Dates: start: 20190807, end: 20190810

REACTIONS (2)
  - Cardio-respiratory arrest [Fatal]
  - Acute respiratory distress syndrome [Fatal]

NARRATIVE: CASE EVENT DATE: 20190810
